FAERS Safety Report 14123596 (Version 2)
Quarter: 2019Q1

REPORT INFORMATION
  Report Type: Spontaneous
  Country: NL (occurrence: NL)
  Receive Date: 20171025
  Receipt Date: 20190110
  Transmission Date: 20190417
  Serious: Yes (Hospitalization, Disabling)
  Sender: FDA-Public Use
  Company Number: NL-UCBSA-2017041448

PATIENT
  Age: 16 Year
  Sex: Male
  Weight: 44 kg

DRUGS (4)
  1. MELATONIN [Concomitant]
     Active Substance: MELATONIN
     Indication: PRODUCT USED FOR UNKNOWN INDICATION
     Dosage: 1 DF, UNK
     Route: 048
  2. KEPPRA [Suspect]
     Active Substance: LEVETIRACETAM
     Indication: EPILEPSY
     Dosage: 1000 MG DAILY; 2 DD 1000 MG
     Route: 048
     Dates: start: 20170813, end: 20171008
  3. DEXAMETHASON [Concomitant]
     Active Substance: DEXAMETHASONE
     Indication: PRODUCT USED FOR UNKNOWN INDICATION
     Dosage: 1 DF, UNK
     Route: 048
  4. TEMOZOLOMIDE. [Concomitant]
     Active Substance: TEMOZOLOMIDE
     Indication: PRODUCT USED FOR UNKNOWN INDICATION
     Dosage: 5 MG, GEDURENDE 2 WEKEN BIJ RADIOTHERAPIE
     Route: 048
     Dates: start: 20170904, end: 20170919

REACTIONS (4)
  - Off label use [Unknown]
  - Bone marrow failure [Unknown]
  - Pyrexia [Unknown]
  - Haematoma [Unknown]

NARRATIVE: CASE EVENT DATE: 20170813
